FAERS Safety Report 5143443-3 (Version None)
Quarter: 2006Q4

REPORT INFORMATION
  Report Type: 
  Country: None (occurrence: None)
  Receive Date: 20061103
  Receipt Date: 20061026
  Transmission Date: 20070319
  Serious: Yes (Hospitalization, Disabling)
  Sender: FDA-Public Use
  Company Number: GB-MERCK-0610GBR00516

PATIENT
  Age: 56 Year
  Sex: Female
  Weight: 88 kg

DRUGS (2)
  1. INVANZ [Suspect]
     Indication: KLEBSIELLA SEPSIS
     Route: 051
     Dates: start: 20060911, end: 20060924
  2. INVANZ [Suspect]
     Indication: URINARY TRACT INFECTION
     Route: 051
     Dates: start: 20060911, end: 20060924

REACTIONS (4)
  - CONFUSIONAL STATE [None]
  - DEPRESSED LEVEL OF CONSCIOUSNESS [None]
  - SOMNOLENCE [None]
  - TREMOR [None]
